FAERS Safety Report 13655772 (Version 1)
Quarter: 2017Q2

REPORT INFORMATION
  Report Type: Report from Study
  Country: IT (occurrence: IT)
  Receive Date: 20170615
  Receipt Date: 20170615
  Transmission Date: 20170830
  Serious: Yes (Hospitalization)
  Sender: FDA-Public Use
  Company Number: IT-ROCHE-1919863

PATIENT
  Age: 37 Year
  Sex: Female
  Weight: 80 kg

DRUGS (4)
  1. PALBOCICLIB [Suspect]
     Active Substance: PALBOCICLIB
     Indication: HER-2 POSITIVE BREAST CANCER
     Route: 048
     Dates: start: 20170407, end: 20170408
  2. PERTUZUMAB [Suspect]
     Active Substance: PERTUZUMAB
     Indication: INVASIVE DUCTAL BREAST CARCINOMA
     Dosage: LOADING DOSE?(30 MG/ML - 1 VIAL)
     Route: 042
     Dates: start: 20170407, end: 20170407
  3. TRASTUZUMAB [Suspect]
     Active Substance: TRASTUZUMAB
     Indication: INVASIVE DUCTAL BREAST CARCINOMA
     Dosage: LOADING DOSE?POWDER FOR SOLUTION FOR INTRAVENOUS INFUSION
     Route: 042
     Dates: start: 20170407, end: 20170407
  4. PERTUZUMAB [Suspect]
     Active Substance: PERTUZUMAB
     Dosage: MAINTENANCE DOSE
     Route: 042

REACTIONS (2)
  - Pyrexia [Recovered/Resolved]
  - Flushing [Recovered/Resolved]

NARRATIVE: CASE EVENT DATE: 20170407
